FAERS Safety Report 19089333 (Version 3)
Quarter: 2021Q4

REPORT INFORMATION
  Report Type: Report from Study
  Country: KE (occurrence: KE)
  Receive Date: 20210403
  Receipt Date: 20211230
  Transmission Date: 20220303
  Serious: Yes (Hospitalization, Other)
  Sender: FDA-Public Use
  Company Number: KE-CIPLA LTD.-2021KE02500

PATIENT

DRUGS (3)
  1. LOPINAVIR\RITONAVIR [Suspect]
     Active Substance: LOPINAVIR\RITONAVIR
     Indication: HIV infection WHO clinical stage I
     Dosage: 3 DOSAGE FORM, BID (120MG/30MG TWICE DAILY)
     Route: 048
     Dates: start: 20170623, end: 20181106
  2. BACTRIM [Concomitant]
     Active Substance: SULFAMETHOXAZOLE\TRIMETHOPRIM
     Indication: Prophylaxis
     Dosage: UNK
     Route: 065
     Dates: start: 20180623
  3. AMIKACIN [Concomitant]
     Active Substance: AMIKACIN
     Indication: Otitis media
     Dosage: 75 MILLIGRAM, BID
     Route: 042
     Dates: start: 20180820, end: 20180823

REACTIONS (5)
  - Pneumonia [Recovered/Resolved]
  - Cellulitis [Recovered/Resolved]
  - Respiratory tract infection [Recovered/Resolved]
  - Otitis media [Recovered/Resolved]
  - Anaemia [Recovered/Resolved]

NARRATIVE: CASE EVENT DATE: 20170911
